FAERS Safety Report 5158151-2 (Version None)
Quarter: 2006Q4

REPORT INFORMATION
  Report Type: 
  Country: None (occurrence: None)
  Receive Date: 20061120
  Receipt Date: 20061120
  Transmission Date: 20070319
  Serious: Yes (Other)
  Sender: FDA-Public Use
  Company Number: None

PATIENT
  Age: 70 Year
  Sex: Male
  Weight: 83 kg

DRUGS (1)
  1. PROPOFOL [Suspect]
     Indication: SEDATION
     Dosage: TITRATION FOR SEDATION CONTIN. INFUSION IV DRIP
     Route: 041
     Dates: start: 20061112, end: 20061113

REACTIONS (3)
  - INFUSION RELATED REACTION [None]
  - INFUSION SITE RASH [None]
  - RASH ERYTHEMATOUS [None]
